FAERS Safety Report 16325195 (Version 1)
Quarter: 2019Q2

REPORT INFORMATION
  Report Type: Spontaneous
  Country: GB (occurrence: GB)
  Receive Date: 20190517
  Receipt Date: 20190517
  Transmission Date: 20190711
  Serious: Yes (Other)
  Sender: FDA-Public Use
  Company Number: GB-ASTRAZENECA-2019SE70389

PATIENT
  Age: 62 Year
  Sex: Female
  Weight: 59.6 kg

DRUGS (16)
  1. DOCUSATE SODIUM. [Concomitant]
     Active Substance: DOCUSATE SODIUM
  2. LAMOTRIGINE. [Concomitant]
     Active Substance: LAMOTRIGINE
  3. ZUCLOPENTHIXOL DECANOATE [Concomitant]
     Active Substance: ZUCLOPENTHIXOL DECANOATE
  4. NICORETTE QUICKMIST [Concomitant]
     Active Substance: NICOTINE
  5. NICORETTE [Concomitant]
     Active Substance: NICOTINE
     Route: 055
  6. CLENIL MODULITE [Concomitant]
     Active Substance: BECLOMETHASONE DIPROPIONATE
  7. CODEINE [Concomitant]
     Active Substance: CODEINE
  8. SALMETEROL [Concomitant]
     Active Substance: SALMETEROL
  9. ZUCLOPENTHIXOL HYDROCHLORIDE [Concomitant]
     Active Substance: ZUCLOPENTHIXOL HYDROCHLORIDE
  10. CHLORHEXIDINE [Concomitant]
     Active Substance: CHLORHEXIDINE
  11. PARACETAMOL [Concomitant]
     Active Substance: ACETAMINOPHEN
  12. COLECALCIFEROL [Concomitant]
     Active Substance: CHOLECALCIFEROL
  13. CASSIA SENNA [Concomitant]
     Active Substance: HERBALS\SENNOSIDES
  14. OXYBUTYNIN. [Concomitant]
     Active Substance: OXYBUTYNIN CHLORIDE
  15. QUETIAPINE. [Suspect]
     Active Substance: QUETIAPINE
     Indication: SCHIZOAFFECTIVE DISORDER
     Dosage: 150.0MG UNKNOWN
     Route: 048
     Dates: start: 20190306, end: 20190328
  16. LORAZEPAM. [Concomitant]
     Active Substance: LORAZEPAM

REACTIONS (4)
  - Derealisation [Recovered/Resolved]
  - Dysarthria [Recovered/Resolved]
  - Dysmetropsia [Recovered/Resolved]
  - Gait disturbance [Recovered/Resolved]

NARRATIVE: CASE EVENT DATE: 20190306
